FAERS Safety Report 5289442-2 (Version None)
Quarter: 2007Q2

REPORT INFORMATION
  Report Type: 
  Country: None (occurrence: None)
  Receive Date: 20070406
  Receipt Date: 20070312
  Transmission Date: 20071010
  Serious: Yes (Hospitalization)
  Sender: FDA-Public Use
  Company Number: US-SANOFI-SYNTHELABO-A03200702306

PATIENT
  Sex: Female

DRUGS (1)
  1. AMBIEN [Suspect]
     Indication: INSOMNIA
     Dosage: UNK
     Route: 048
     Dates: start: 20060601, end: 20060601

REACTIONS (5)
  - AMNESIA [None]
  - FACIAL BONES FRACTURE [None]
  - FALL [None]
  - MALAISE [None]
  - SLEEP WALKING [None]
